FAERS Safety Report 22178339 (Version 2)
Quarter: 2023Q2

REPORT INFORMATION
  Report Type: Report from Study
  Country: US (occurrence: US)
  Receive Date: 20230405
  Receipt Date: 20230526
  Transmission Date: 20230721
  Serious: Yes (Hospitalization)
  Sender: FDA-Public Use
  Company Number: US-JNJFOC-20230372959

PATIENT
  Age: 87 Year
  Sex: Male

DRUGS (12)
  1. MACITENTAN [Suspect]
     Active Substance: MACITENTAN
     Indication: Pulmonary arterial hypertension
     Route: 048
     Dates: start: 202302
  2. MACITENTAN [Suspect]
     Active Substance: MACITENTAN
     Route: 048
     Dates: start: 202212, end: 20230503
  3. BUMEX [Concomitant]
     Active Substance: BUMETANIDE
     Indication: Cardiac failure
     Dates: start: 20230411
  4. SILDENAFIL [Concomitant]
     Active Substance: SILDENAFIL
     Dates: start: 20230411
  5. ELIQUIS [Concomitant]
     Active Substance: APIXABAN
     Indication: Atrial fibrillation
  6. ASPIRIN [Concomitant]
     Active Substance: ASPIRIN
  7. ATORVASTATIN [Concomitant]
     Active Substance: ATORVASTATIN
  8. FARXICAN [Concomitant]
     Indication: Cardiac failure
     Dates: start: 20230411
  9. GLIPIZIDE [Concomitant]
     Active Substance: GLIPIZIDE
     Indication: Diabetes mellitus
     Dates: start: 20230411
  10. METFORMIN [Concomitant]
     Active Substance: METFORMIN HYDROCHLORIDE
     Indication: Diabetes mellitus
     Dates: start: 20230411
  11. METOPROLOL [Concomitant]
     Active Substance: METOPROLOL
     Indication: Atrial fibrillation
  12. PANTOPRAZOLE [Concomitant]
     Active Substance: PANTOPRAZOLE
     Indication: Gastrooesophageal reflux disease
     Dates: start: 20230411

REACTIONS (5)
  - Fluid retention [Recovering/Resolving]
  - Full blood count decreased [Recovering/Resolving]
  - Product label issue [Unknown]
  - Anaemia [Unknown]
  - Amnesia [Unknown]

NARRATIVE: CASE EVENT DATE: 20230301
